FAERS Safety Report 4559165-3 (Version None)
Quarter: 2005Q1

REPORT INFORMATION
  Report Type: 
  Country: None (occurrence: None)
  Receive Date: 20050120
  Receipt Date: 20050120
  Transmission Date: 20050727
  Serious: Yes (Hospitalization, Other)
  Sender: FDA-Public Use
  Company Number: None

PATIENT
  Weight: 58.514 kg

DRUGS (1)
  1. AMIODARONE HCL [Suspect]
     Indication: ATRIAL FIBRILLATION
     Dosage: 400 MG PO BID X 1 WEEK (THEN TAPER U.D.)
     Route: 048

REACTIONS (6)
  - ABDOMINAL PAIN [None]
  - ASTHENIA [None]
  - EATING DISORDER [None]
  - FLATULENCE [None]
  - NAUSEA [None]
  - VOMITING [None]
